FAERS Safety Report 8915818 (Version 1)
Quarter: 2012Q4

REPORT INFORMATION
  Report Type: 
  Country: US (occurrence: US)
  Receive Date: 20121119
  Receipt Date: 20121119
  Transmission Date: 20130627
  Serious: No
  Sender: FDA-Public Use
  Company Number: US-PFIZER INC-2012287052

PATIENT

DRUGS (2)
  1. CELEBREX [Suspect]
     Dosage: UNK
  2. ALEVE [Suspect]
     Dosage: UNK

REACTIONS (3)
  - Pain [Unknown]
  - Joint stiffness [Unknown]
  - Gait disturbance [Unknown]
